FAERS Safety Report 6998418-6 (Version None)
Quarter: 2010Q3

REPORT INFORMATION
  Report Type: 
  Country: None (occurrence: None)
  Receive Date: 20100920
  Receipt Date: 20100908
  Transmission Date: 20110219
  Serious: Yes (Other)
  Sender: FDA-Public Use
  Company Number: CA-JNJFOC-20100902885

PATIENT
  Sex: Male
  Weight: 78 kg

DRUGS (6)
  1. REMICADE [Suspect]
     Indication: PSORIASIS
     Route: 042
     Dates: start: 20080501, end: 20100601
  2. TIMOLOL MALEATE [Concomitant]
  3. COSOPT [Concomitant]
  4. NASONEX [Concomitant]
  5. NAPROXEN [Concomitant]
  6. OXYCODONE HCL [Concomitant]

REACTIONS (1)
  - VISUAL IMPAIRMENT [None]
